FAERS Safety Report 23887037 (Version 1)
Quarter: 2024Q2

REPORT INFORMATION
  Report Type: Spontaneous
  Country: JP (occurrence: JP)
  Receive Date: 20240523
  Receipt Date: 20240523
  Transmission Date: 20240716
  Serious: Yes (Other)
  Sender: FDA-Public Use
  Company Number: JP-TEYRO-2024-TY-000159

PATIENT
  Age: 76 Year
  Sex: Female

DRUGS (4)
  1. CARBOPLATIN [Suspect]
     Active Substance: CARBOPLATIN
     Indication: Sarcomatoid carcinoma of the lung
     Dosage: UNK
     Route: 065
     Dates: start: 202101
  2. IPILIMUMAB [Suspect]
     Active Substance: IPILIMUMAB
     Indication: Sarcomatoid carcinoma of the lung
     Dosage: UNK
     Route: 065
     Dates: start: 202101
  3. NIVOLUMAB [Suspect]
     Active Substance: NIVOLUMAB
     Indication: Sarcomatoid carcinoma of the lung
     Dosage: UNK
     Route: 065
     Dates: start: 202101
  4. PACLITAXEL [Suspect]
     Active Substance: PACLITAXEL
     Indication: Sarcomatoid carcinoma of the lung
     Dosage: UNK
     Route: 065
     Dates: start: 202101

REACTIONS (3)
  - Therapy partial responder [Unknown]
  - Therapeutic response unexpected [Unknown]
  - Off label use [Unknown]
